FAERS Safety Report 4784994-0 (Version None)
Quarter: 2005Q3

REPORT INFORMATION
  Report Type: 
  Country: None (occurrence: None)
  Receive Date: 20050928
  Receipt Date: 20050914
  Transmission Date: 20060218
  Serious: Yes (Death, Life-Threatening, Hospitalization)
  Sender: FDA-Public Use
  Company Number: 2005-01460

PATIENT
  Age: 69 Year
  Sex: Male
  Weight: 82 kg

DRUGS (21)
  1. VELCADE [Suspect]
     Indication: ACUTE MYELOID LEUKAEMIA
     Dosage: 0.70 MG/M2, 2/WEEK, IV BOLUS
     Route: 040
     Dates: start: 20050614, end: 20050624
  2. 17-AGG (17-ALLYAMINOGELDANAMYCIN) [Concomitant]
     Indication: ACUTE MYELOID LEUKAEMIA
     Dosage: 150.00 MG/M2, 2/WEEK, INTRAVENOUS
     Route: 042
     Dates: start: 20050614, end: 20050624
  3. ACETAMINOPHEN [Concomitant]
  4. ALBUTEROL [Concomitant]
  5. CASPOFUNGIN [Concomitant]
  6. CEFEPIME [Concomitant]
  7. DIPHENHYDRAMINE [Concomitant]
  8. INSULIN [Concomitant]
  9. LOPERAMIDE [Concomitant]
  10. LORATADINE [Concomitant]
  11. LORAZEPAM [Concomitant]
  12. MAGNESIUM SULFATE [Concomitant]
  13. MANNITOL [Concomitant]
  14. MORPHINE [Concomitant]
  15. ONDANSETRON [Concomitant]
  16. PANTOPRAZOLE [Concomitant]
  17. POTASSIUM [Concomitant]
  18. PHENERGAN [Concomitant]
  19. TOBRAMYCIN [Concomitant]
  20. VANCOMYCIN [Concomitant]
  21. ZOSYN [Concomitant]

REACTIONS (34)
  - BLOOD BICARBONATE DECREASED [None]
  - BRAIN HERNIATION [None]
  - CEREBELLAR HAEMORRHAGE [None]
  - CEREBRAL HAEMORRHAGE [None]
  - CEREBRAL VENTRICLE DILATATION [None]
  - CONDITION AGGRAVATED [None]
  - CONFUSIONAL STATE [None]
  - CRANIAL NERVE DISORDER [None]
  - DIARRHOEA [None]
  - DYSPHAGIA [None]
  - ELECTROCARDIOGRAM QT CORRECTED INTERVAL PROLONGED [None]
  - ELECTROCARDIOGRAM ST-T CHANGE [None]
  - FALL [None]
  - FEBRILE NEUTROPENIA [None]
  - HAEMATEMESIS [None]
  - HAEMOGLOBIN DECREASED [None]
  - HAEMORRHAGIC DIATHESIS [None]
  - HYPERGLYCAEMIA [None]
  - HYPERTENSION [None]
  - HYPERTENSIVE CARDIOMEGALY [None]
  - INTERNATIONAL NORMALISED RATIO INCREASED [None]
  - INTRACRANIAL PRESSURE INCREASED [None]
  - LOSS OF CONSCIOUSNESS [None]
  - METASTASES TO CENTRAL NERVOUS SYSTEM [None]
  - MYOCARDIAL INFARCTION [None]
  - NAUSEA [None]
  - RECTAL HAEMORRHAGE [None]
  - RENAL FAILURE [None]
  - SCOTOMA [None]
  - SINUS TACHYCARDIA [None]
  - THALAMUS HAEMORRHAGE [None]
  - THROMBOCYTOPENIA [None]
  - VENTRICULAR HYPERTROPHY [None]
  - VOMITING [None]
